FAERS Safety Report 5493532-9 (Version None)
Quarter: 2007Q4

REPORT INFORMATION
  Report Type: 
  Country: None (occurrence: None)
  Receive Date: 20071023
  Receipt Date: 20071009
  Transmission Date: 20080405
  Serious: Yes (Hospitalization)
  Sender: FDA-Public Use
  Company Number: BR-SHR-BR-2007-038326

PATIENT
  Age: 41 Year
  Sex: Female

DRUGS (1)
  1. BETASERON [Suspect]
     Dosage: 9.6 MIU, EVERY 2D
     Route: 058
     Dates: start: 20070730, end: 20071002

REACTIONS (2)
  - DEPRESSION [None]
  - INVESTIGATION [None]
